FAERS Safety Report 4435180-5 (Version None)
Quarter: 2004Q3

REPORT INFORMATION
  Report Type: 
  Country: None (occurrence: None)
  Receive Date: 20040826
  Receipt Date: 20040813
  Transmission Date: 20050211
  Serious: Yes (Life-Threatening, Other)
  Sender: FDA-Public Use
  Company Number: GBWYE978717AUG04

PATIENT
  Age: 25 Year
  Sex: Female

DRUGS (2)
  1. TAZOCIN (PIPERACILLIN/TAZOBACTAM, INJECTION) [Suspect]
     Dosage: TOPICAL
     Route: 061
     Dates: start: 20040620, end: 20040620
  2. PENICLLIN NOS (PENICILLIN NOS) [Concomitant]

REACTIONS (4)
  - ACCIDENTAL EXPOSURE [None]
  - SWELLING FACE [None]
  - THROAT TIGHTNESS [None]
  - URTICARIA [None]
